APPROVED DRUG PRODUCT: XELJANZ XR
Active Ingredient: TOFACITINIB CITRATE
Strength: EQ 11MG BASE
Dosage Form/Route: TABLET, EXTENDED RELEASE;ORAL
Application: N208246 | Product #001 | TE Code: AB
Applicant: PFIZER INC
Approved: Feb 23, 2016 | RLD: Yes | RS: No | Type: RX

PATENTS:
Patent 11253523 | Expires: Mar 14, 2034
Patent 11253523 | Expires: Mar 14, 2034
Patent 11253523 | Expires: Mar 14, 2034
Patent 11253523 | Expires: Mar 14, 2034
Patent RE41783 | Expires: Dec 8, 2025
Patent 9937181 | Expires: Mar 14, 2034
Patent RE41783*PED | Expires: Jun 8, 2026
Patent 9937181*PED | Expires: Sep 14, 2034
Patent 11253523*PED | Expires: Sep 14, 2034